FAERS Safety Report 20937203 (Version 2)
Quarter: 2022Q3

REPORT INFORMATION
  Report Type: Spontaneous
  Country: US (occurrence: US)
  Receive Date: 20220609
  Receipt Date: 20220721
  Transmission Date: 20221027
  Serious: Yes (Life-Threatening, Hospitalization, Other)
  Sender: FDA-Public Use
  Company Number: US-BRISTOL-MYERS SQUIBB COMPANY-2022-051922

PATIENT
  Age: 78 Year
  Sex: Male
  Weight: 99.79 kg

DRUGS (25)
  1. ORENCIA [Suspect]
     Active Substance: ABATACEPT
     Indication: Product used for unknown indication
     Dosage: INJECT 125 MG (1 SYRINGE)?10-JUN-2022 PRESCRIBED
     Route: 058
  2. AMLODIPINE ZJ [Concomitant]
     Indication: Product used for unknown indication
     Dosage: 1 TABLET EVERYDAY,  06-JUN-2022, FILLED
     Route: 048
  3. ASPIRIN [Concomitant]
     Active Substance: ASPIRIN
     Indication: Product used for unknown indication
     Dosage: DELAYED RELEASE, 1TABLET EVERY DAY ?14-AUG-2020 ENTERED
     Route: 048
  4. BUTALBITAL, ACETAMINOPHEN, AND CAFFEINE [Concomitant]
     Active Substance: ACETAMINOPHEN\BUTALBITAL\CAFFEINE
     Indication: Product used for unknown indication
     Dosage: BUTALBITAL-50MG, ACETAMINOPHEN-325MG AND CAFFEINE-40MG?20-MAY-2022 FILLED
  5. CETIRIZINE HYDROCHLORIDE [Concomitant]
     Active Substance: CETIRIZINE HYDROCHLORIDE
     Indication: Product used for unknown indication
     Dosage: 1 TABLET FOR 90 DAYS 10-MAY-2022 FILLED
     Route: 048
  6. CLOPIDOGREL HYDROCHLORIDE [Concomitant]
     Active Substance: CLOPIDOGREL HYDROCHLORIDE
     Indication: Product used for unknown indication
     Dosage: 1 TABLET EVERYDAY?22-JUN-2022 FILLED
     Route: 048
  7. CRANBERRY [Concomitant]
     Active Substance: CRANBERRY
     Indication: Product used for unknown indication
     Dosage: 2 AT QHS 26-JAN-2022 ENTERED
     Route: 065
  8. DULOXETINE [Concomitant]
     Active Substance: DULOXETINE
     Indication: Product used for unknown indication
     Dosage: PO QD?16-MAY-2022 FILLED
     Route: 048
  9. DULOXETINE [Concomitant]
     Active Substance: DULOXETINE
     Dosage: PO QD?23-JUN-2022 FILLED
     Route: 048
  10. FINAS [FINASTERIDE] [Concomitant]
     Indication: Product used for unknown indication
     Dosage: 1 TABLET EVERYDAY?13-APR-2022 FILLED
     Route: 048
  11. FA OD [Concomitant]
     Indication: Product used for unknown indication
     Dosage: 1 TABLET EVERY DAY?10-MAY-2022 FILLED
     Route: 048
  12. HYDROCODONE BITARTRATE AND ACETAMINOPHEN [Concomitant]
     Active Substance: ACETAMINOPHEN\HYDROCODONE BITARTRATE
     Indication: Product used for unknown indication
     Dosage: HYDROCODONE BITARTRATE-10MG AND ACETAMINOPHEN-325MG?1TABLET EVERYDAY?13-JUN-2022 FILLED
     Route: 048
  13. HYDROXYCHLOROQUINE [Concomitant]
     Active Substance: HYDROXYCHLOROQUINE
     Indication: Product used for unknown indication
     Dosage: 1 TABLET TWICE A DAY ?16-MAY-2022 FILLED
     Route: 048
  14. LEVOTHYROXINE SODIUM [Concomitant]
     Active Substance: LEVOTHYROXINE SODIUM
     Indication: Product used for unknown indication
     Dosage: 1 TABLET EVERYDAY 13-APR-2022 FILLED
     Route: 048
  15. LOSARTAN [Concomitant]
     Active Substance: LOSARTAN
     Indication: Product used for unknown indication
     Dosage: 1 TABLET EVERY DAY FOR 30 DAYS?08-JUN-2022 FILLED
     Route: 048
  16. MONTELUKAST [Concomitant]
     Active Substance: MONTELUKAST SODIUM
     Indication: Product used for unknown indication
     Dosage: 1 TABLET EVERYDAY?09-MAY-2022 FILLED
     Route: 048
  17. NEBIVOLOL [Concomitant]
     Active Substance: NEBIVOLOL
     Indication: Product used for unknown indication
     Dosage: TAKE 1 TABLET EVERYDAY?09-MAY-2022 FILLED
     Route: 048
  18. OMEZOL [OMEPRAZOLE SODIUM] [Concomitant]
     Indication: Product used for unknown indication
     Dosage: 1 CAPSULE EVERY DAY DELAYED RELEASE?13-APR-2022 FILLED
     Route: 048
  19. PREDNISONE ACETATE [Concomitant]
     Active Substance: PREDNISONE ACETATE
     Indication: Product used for unknown indication
     Dosage: TAKE 1 TABLET PO QD X^S 2 WEEKS THEN TAKE 0.5 TABLET PO QD?23-JUN-2022 FILLED
     Route: 048
  20. ROSUVASTATIN [Concomitant]
     Active Substance: ROSUVASTATIN
     Indication: Product used for unknown indication
     Dosage: 1 TABLET EVERY DAY?14-AUG-2020 ENTERED
     Route: 048
  21. HERBALS\SAW PALMETTO [Concomitant]
     Active Substance: HERBALS\SAW PALMETTO
     Indication: Product used for unknown indication
     Dosage: 2 QHS
     Route: 065
  22. TRAMADOL HYDROCHLORIDE [Concomitant]
     Active Substance: TRAMADOL HYDROCHLORIDE
     Indication: Product used for unknown indication
     Dosage: 05-MAY-2022 FILLED
     Route: 065
  23. ZINC [ZINC SULFATE MONOHYDRATE] [Concomitant]
     Indication: Product used for unknown indication
     Dosage: 1 TABLET TWICE A DAY?26-JAN-2022 ENTERED
     Route: 048
  24. ZOLPIDEM [Concomitant]
     Active Substance: ZOLPIDEM TARTRATE
     Indication: Product used for unknown indication
     Dosage: 20-MAY-2022 FILLED
     Route: 065
  25. COVID-19 VACCINE MRNA S [Concomitant]
     Indication: Product used for unknown indication
     Dosage: COVID 19 MRNA LNP-S PF 30MCG/0.3ML DOSE PFIZER BIONTECH 25-FEB-2021
     Route: 065

REACTIONS (4)
  - Adverse event [Unknown]
  - Rheumatoid arthritis [Unknown]
  - Osteoarthritis [Unknown]
  - Respiratory failure [Unknown]

NARRATIVE: CASE EVENT DATE: 20210304
